FAERS Safety Report 20729016 (Version 3)
Quarter: 2022Q2

REPORT INFORMATION
  Report Type: Report from Study
  Country: HU (occurrence: HU)
  Receive Date: 20220420
  Receipt Date: 20220509
  Transmission Date: 20220720
  Serious: Yes (Death, Life-Threatening, Hospitalization, Other)
  Sender: FDA-Public Use
  Company Number: HU-AMGEN-HUNSL2021084641

PATIENT
  Age: 54 Year
  Sex: Male

DRUGS (3)
  1. KYPROLIS [Suspect]
     Active Substance: CARFILZOMIB
     Indication: Plasma cell myeloma
     Dosage: UNK , QWK DOUBLE DOSE, 1X WEEKLY
     Route: 065
     Dates: start: 20210426
  2. KYPROLIS [Suspect]
     Active Substance: CARFILZOMIB
     Dosage: UNK, Q3WK
     Route: 065
  3. KYPROLIS [Suspect]
     Active Substance: CARFILZOMIB
     Dosage: UNK , QWK , 1X WEEKLY
     Route: 065

REACTIONS (7)
  - Seizure [Unknown]
  - Oral surgery [Unknown]
  - Unevaluable event [Unknown]
  - Post procedural complication [Unknown]
  - Death [Fatal]
  - COVID-19 [Unknown]
  - Off label use [Unknown]

NARRATIVE: CASE EVENT DATE: 20210101
